FAERS Safety Report 6965112-7 (Version None)
Quarter: 2010Q3

REPORT INFORMATION
  Report Type: 
  Country: None (occurrence: None)
  Receive Date: 20100903
  Receipt Date: 20100826
  Transmission Date: 20110219
  Serious: Yes (Hospitalization, Other)
  Sender: FDA-Public Use
  Company Number: US-ELI_LILLY_AND_COMPANY-US201008005570

PATIENT
  Sex: Male
  Weight: 81 kg

DRUGS (3)
  1. PRASUGREL HYDROCHLORIDE [Suspect]
     Indication: ACUTE CORONARY SYNDROME
     Dosage: 10 MG, DAILY (1/D)
     Dates: start: 20100226, end: 20100710
  2. ASPIRIN [Concomitant]
     Indication: PRODUCT USED FOR UNKNOWN INDICATION
     Dosage: 325 MG, DAILY (1/D)
     Dates: end: 20100710
  3. SIMVASTATIN [Concomitant]
     Indication: BLOOD CHOLESTEROL
     Dosage: 20 MG, DAILY (1/D)
     Route: 048

REACTIONS (1)
  - CAROTID ARTERY STENOSIS [None]
